FAERS Safety Report 20691584 (Version 1)
Quarter: 2022Q2

REPORT INFORMATION
  Report Type: Spontaneous
  Country: US (occurrence: US)
  Receive Date: 20220408
  Receipt Date: 20220408
  Transmission Date: 20220721
  Serious: No
  Sender: FDA-Public Use
  Company Number: US-BAUSCH-BL-2022-008510

PATIENT
  Age: 68 Year
  Sex: Female
  Weight: 69.008 kg

DRUGS (1)
  1. OPCON-A [Suspect]
     Active Substance: NAPHAZOLINE HYDROCHLORIDE\PHENIRAMINE MALEATE
     Indication: Hypersensitivity
     Dosage: 1 DROPS INTO BOTH EYES
     Route: 047
     Dates: start: 20220404

REACTIONS (2)
  - Instillation site pain [Recovered/Resolved]
  - Mydriasis [Unknown]

NARRATIVE: CASE EVENT DATE: 20220404
